FAERS Safety Report 9304082 (Version 1)
Quarter: 2013Q1

REPORT INFORMATION
  Report Type: Spontaneous
  Country: US (occurrence: None)
  Receive Date: 20121226
  Receipt Date: 20121226
  Transmission Date: 20140127
  Serious: Yes (Hospitalization)
  Sender: FDA-Public Use
  Company Number: 2012-8222

PATIENT
  Age: 10 Year
  Sex: Male
  Weight: 20.7 kg

DRUGS (2)
  1. INCRELEX [Suspect]
     Indication: BODY HEIGHT BELOW NORMAL
     Dosage: (2.4 MG, 2 IN 1 D)
     Route: 058
     Dates: start: 201202
  2. INCRELEX [Suspect]
     Indication: OFF LABEL USE
     Dosage: (2.4 MG, 2 IN 1 D)
     Route: 058
     Dates: start: 201202

REACTIONS (3)
  - Anxiety [None]
  - Aggression [None]
  - Abnormal behaviour [None]
